FAERS Safety Report 7644362-0 (Version None)
Quarter: 2011Q3

REPORT INFORMATION
  Report Type: 
  Country: None (occurrence: None)
  Receive Date: 20110729
  Receipt Date: 20110716
  Transmission Date: 20111222
  Serious: Yes (Other)
  Sender: FDA-Public Use
  Company Number: JP-ELI_LILLY_AND_COMPANY-JP201107005530

PATIENT

DRUGS (1)
  1. HUMALOG MIX 50/50 [Suspect]

REACTIONS (1)
  - BLOOD GLUCOSE INCREASED [None]
